FAERS Safety Report 23086661 (Version 1)
Quarter: 2023Q4

REPORT INFORMATION
  Report Type: Spontaneous
  Country: US (occurrence: None)
  Receive Date: 20231020
  Receipt Date: 20231020
  Transmission Date: 20240110
  Serious: Yes (Other)
  Sender: FDA-Public Use
  Company Number: US-ENDO-CASE-0032660

PATIENT
  Sex: Male

DRUGS (10)
  1. TRAMADOL HYDROCHLORIDE [Suspect]
     Active Substance: TRAMADOL HYDROCHLORIDE
  2. ACETAMINOPHEN\HYDROCODONE BITARTRATE [Suspect]
     Active Substance: ACETAMINOPHEN\HYDROCODONE BITARTRATE
  3. PERCOCET [Suspect]
     Active Substance: ACETAMINOPHEN\OXYCODONE HYDROCHLORIDE
  4. ACETAMINOPHEN\OXYCODONE HYDROCHLORIDE [Suspect]
     Active Substance: ACETAMINOPHEN\OXYCODONE HYDROCHLORIDE
  5. OPIUM [Suspect]
     Active Substance: OPIUM
  6. ULTRACET [Suspect]
     Active Substance: ACETAMINOPHEN\TRAMADOL HYDROCHLORIDE
  7. HYDROCODONE BITARTRATE\IBUPROFEN [Suspect]
     Active Substance: HYDROCODONE BITARTRATE\IBUPROFEN
  8. TYLOX [Suspect]
     Active Substance: ACETAMINOPHEN\OXYCODONE HYDROCHLORIDE
  9. FENTANYL CITRATE [Suspect]
     Active Substance: FENTANYL CITRATE
  10. TALWIN [Suspect]
     Active Substance: PENTAZOCINE LACTATE

REACTIONS (1)
  - Dependence [Unknown]
